FAERS Safety Report 26123950 (Version 1)
Quarter: 2025Q4

REPORT INFORMATION
  Report Type: Spontaneous
  Country: CN (occurrence: CN)
  Receive Date: 20251205
  Receipt Date: 20251205
  Transmission Date: 20260118
  Serious: Yes (Other)
  Sender: AMGEN
  Company Number: CN-AMGEN-CHNSP2025236851

PATIENT
  Age: 68 Year
  Sex: Female
  Weight: 52 kg

DRUGS (1)
  1. XGEVA [Suspect]
     Active Substance: DENOSUMAB
     Indication: Prophylaxis
     Dosage: 120 MILLIGRAM,FREQUENCY ONE (OVER TWO YEARS)
     Route: 058

REACTIONS (1)
  - Osteitis [Recovering/Resolving]

NARRATIVE: CASE EVENT DATE: 20251114
